FAERS Safety Report 6752898-X (Version None)
Quarter: 2010Q2

REPORT INFORMATION
  Report Type: 
  Country: None (occurrence: None)
  Receive Date: 20100602
  Receipt Date: 20100602
  Transmission Date: 20101027
  Serious: No
  Sender: FDA-Public Use
  Company Number: None

PATIENT
  Age: 71 Year
  Sex: Male
  Weight: 127.0072 kg

DRUGS (1)
  1. GENTAMICIN [Suspect]
     Indication: INFECTION
     Dosage: 710 MG 24 HRS IV DRIP
     Route: 041
     Dates: start: 20090528, end: 20090622

REACTIONS (3)
  - DRUG TOXICITY [None]
  - OSCILLOPSIA [None]
  - VESTIBULAR DISORDER [None]
